FAERS Safety Report 5789447-9 (Version None)
Quarter: 2008Q2

REPORT INFORMATION
  Report Type: 
  Country: None (occurrence: None)
  Receive Date: 20080626
  Receipt Date: 20080402
  Transmission Date: 20081010
  Serious: No
  Sender: FDA-Public Use
  Company Number: US-ASTRAZENECA-2008UW02976

PATIENT
  Age: 9 Month
  Sex: Male
  Weight: 9.1 kg

DRUGS (6)
  1. PULMICORT-100 [Suspect]
     Indication: ASTHMA
     Route: 055
     Dates: start: 20080103
  2. PULMICORT-100 [Suspect]
     Indication: COUGH
     Route: 055
     Dates: start: 20080103
  3. PULMICORT-100 [Suspect]
     Indication: WHEEZING
     Route: 055
     Dates: start: 20080103
  4. SOPANEX [Concomitant]
  5. CERON [Concomitant]
  6. TYLENOL (CAPLET) [Concomitant]

REACTIONS (1)
  - CHILLS [None]
